FAERS Safety Report 7675768-1 (Version None)
Quarter: 2011Q3

REPORT INFORMATION
  Report Type: 
  Country: None (occurrence: None)
  Receive Date: 20110810
  Receipt Date: 20110801
  Transmission Date: 20111222
  Serious: Yes (Hospitalization, Other)
  Sender: FDA-Public Use
  Company Number: US-ASTRAZENECA-2009SE34037

PATIENT
  Age: 85 Year
  Sex: Female

DRUGS (1)
  1. CRESTOR [Suspect]
     Route: 048

REACTIONS (6)
  - UPPER LIMB FRACTURE [None]
  - WEIGHT INCREASED [None]
  - PATELLA FRACTURE [None]
  - WRIST FRACTURE [None]
  - FALL [None]
  - TOE AMPUTATION [None]
